FAERS Safety Report 5417104-7 (Version None)
Quarter: 2007Q3

REPORT INFORMATION
  Report Type: 
  Country: None (occurrence: None)
  Receive Date: 20070718
  Receipt Date: 20060612
  Transmission Date: 20080115
  Serious: Yes (Hospitalization, Other)
  Sender: FDA-Public Use
  Company Number: 2006064957

PATIENT
  Age: 49 Year
  Sex: Female
  Weight: 75.2971 kg

DRUGS (2)
  1. CELEBREX [Suspect]
     Indication: BACK PAIN
     Dosage: 200 MG (200 MG,1 IN 1 D)
     Dates: start: 19990525
  2. CELEBREX [Suspect]
     Indication: MYALGIA
     Dosage: 200 MG (200 MG,1 IN 1 D)
     Dates: start: 19990525

REACTIONS (1)
  - CEREBROVASCULAR ACCIDENT [None]
